FAERS Safety Report 9912133 (Version 2)
Quarter: 2014Q1

REPORT INFORMATION
  Report Type: Report from Study
  Country: CA (occurrence: CA)
  Receive Date: 20140219
  Receipt Date: 20140219
  Transmission Date: 20141002
  Serious: Yes (Other)
  Sender: FDA-Public Use
  Company Number: CA-BRISTOL-MYERS SQUIBB COMPANY-19033893

PATIENT
  Age: 37 Year
  Sex: Female

DRUGS (6)
  1. ORENCIA [Suspect]
     Indication: RHEUMATOID ARTHRITIS
     Dosage: 1DF-500-UNITS NOS?25AP13-PER4WKS3C81662-EXP-SEP15?3H65580:JUL16
     Dates: start: 20130425
  2. FENTANYL PATCH [Suspect]
  3. CELEBREX [Concomitant]
  4. ARAVA [Concomitant]
  5. TYLENOL [Concomitant]
  6. APRI [Concomitant]

REACTIONS (7)
  - Intervertebral disc protrusion [Unknown]
  - Bacterial vaginosis [Unknown]
  - Oropharyngeal pain [Recovered/Resolved]
  - Lip swelling [Unknown]
  - Dizziness [Recovered/Resolved]
  - Malaise [Recovered/Resolved]
  - Drug ineffective [Unknown]
